FAERS Safety Report 8597331-0 (Version None)
Quarter: 2012Q3

REPORT INFORMATION
  Report Type: 
  Country: None (occurrence: None)
  Receive Date: 20120816
  Receipt Date: 20120810
  Transmission Date: 20120928
  Serious: No
  Sender: FDA-Public Use
  Company Number: US-PFIZER INC-2012195965

PATIENT
  Age: 76 Year
  Sex: Female
  Weight: 83.9 kg

DRUGS (4)
  1. TOVIAZ [Suspect]
     Indication: URINARY RETENTION
     Dosage: 4 MG, 1X/DAY
     Dates: end: 20120810
  2. DETROL [Suspect]
     Indication: MICTURITION URGENCY
  3. TOVIAZ [Suspect]
     Indication: MICTURITION URGENCY
  4. DETROL [Suspect]
     Indication: URINARY RETENTION
     Dosage: UNK

REACTIONS (1)
  - DRUG INEFFECTIVE [None]
